FAERS Safety Report 8539271-9 (Version None)
Quarter: 2012Q3

REPORT INFORMATION
  Report Type: 
  Country: None (occurrence: None)
  Receive Date: 20120726
  Receipt Date: 20120716
  Transmission Date: 20120928
  Serious: Yes (Disabling)
  Sender: FDA-Public Use
  Company Number: FR-SANOFI-AVENTIS-2012SA050224

PATIENT
  Age: 3 Month
  Sex: Female
  Weight: 1.59 kg

DRUGS (15)
  1. VANCOCIN HYDROCHLORIDE [Suspect]
     Route: 042
     Dates: start: 20120217, end: 20120218
  2. VANCOCIN HYDROCHLORIDE [Suspect]
     Route: 042
     Dates: start: 20120319, end: 20120324
  3. LEUCOVORIN CALCIUM [Concomitant]
     Dates: start: 20120214
  4. VANCOCIN HYDROCHLORIDE [Suspect]
     Route: 042
     Dates: start: 20120212, end: 20120214
  5. VANCOCIN HYDROCHLORIDE [Suspect]
     Route: 042
     Dates: start: 20120212, end: 20120214
  6. CLAFORAN [Concomitant]
     Dates: start: 20120217, end: 20120218
  7. FERROUS FUMARATE [Concomitant]
     Route: 048
     Dates: start: 20120305
  8. VANCOCIN HYDROCHLORIDE [Suspect]
     Route: 042
     Dates: start: 20120217, end: 20120218
  9. AMIKACIN [Concomitant]
     Dates: start: 20120217, end: 20120218
  10. LASIX [Suspect]
     Route: 042
     Dates: start: 20120205, end: 20120218
  11. LASIX [Suspect]
     Route: 048
     Dates: start: 20120229
  12. VANCOCIN HYDROCHLORIDE [Suspect]
     Route: 042
     Dates: start: 20120319, end: 20120324
  13. ASCORBIC ACID/ERGOCALCIFEROL/RETINOL/TOCOPHEROL [Concomitant]
     Route: 048
     Dates: start: 20120214
  14. SODIUM CHLORIDE [Concomitant]
     Route: 048
     Dates: start: 20120215
  15. POTASSIUM CHLORIDE [Concomitant]
     Dates: start: 20120319

REACTIONS (1)
  - DEAFNESS BILATERAL [None]
